FAERS Safety Report 5028831-8 (Version None)
Quarter: 2006Q2

REPORT INFORMATION
  Report Type: 
  Country: None (occurrence: None)
  Receive Date: 20060619
  Receipt Date: 20060608
  Transmission Date: 20061013
  Serious: Yes (Hospitalization)
  Sender: FDA-Public Use
  Company Number: US-BRISTOL-MYERS SQUIBB COMPANY-13404736

PATIENT
  Age: 30 Year
  Sex: Male
  Weight: 68 kg

DRUGS (2)
  1. REYATAZ [Suspect]
     Indication: HIV INFECTION
     Dosage: ON 08-JUN-2006, DOSE REDUCED TO 400 MG DAILY AS PRESCRIBED.
  2. EPZICOM [Concomitant]
     Dates: start: 20060101

REACTIONS (3)
  - GALLBLADDER DISORDER [None]
  - JAUNDICE [None]
  - MEDICATION ERROR [None]
